FAERS Safety Report 26072694 (Version 1)
Quarter: 2025Q4

REPORT INFORMATION
  Report Type: Other
  Country: US (occurrence: US)
  Receive Date: 20251120
  Receipt Date: 20251120
  Transmission Date: 20260117
  Serious: Yes (Other)
  Sender: INTERCEPT PHARMACEUTICALS
  Company Number: US-INTERCEPTP-2025-AER-07930

PATIENT
  Age: 82 Year
  Sex: Female

DRUGS (14)
  1. OCALIVA [Suspect]
     Active Substance: OBETICHOLIC ACID
     Indication: Primary biliary cholangitis
     Dates: start: 20160815
  2. OCALIVA [Suspect]
     Active Substance: OBETICHOLIC ACID
     Dates: end: 202201
  3. OCALIVA [Suspect]
     Active Substance: OBETICHOLIC ACID
  4. URSODIOL [Concomitant]
     Active Substance: URSODIOL
  5. OXYCODONE AND ACETAMINOPHEN [Concomitant]
     Active Substance: ACETAMINOPHEN\OXYCODONE HYDROCHLORIDE
  6. VITAMINS [Concomitant]
     Active Substance: VITAMINS
  7. LEVOTHYROXINE [Concomitant]
     Active Substance: LEVOTHYROXINE
  8. ROPINIROLE HCL ER [Concomitant]
  9. ALBUTEROL [Concomitant]
     Active Substance: ALBUTEROL
  10. ATENOLOL [Concomitant]
     Active Substance: ATENOLOL
  11. LASIX [Concomitant]
     Active Substance: FUROSEMIDE
  12. TOPAMAX [Concomitant]
     Active Substance: TOPIRAMATE
  13. SPIRONOLACTONE [Concomitant]
     Active Substance: SPIRONOLACTONE
  14. FENOFIBRATE [Concomitant]
     Active Substance: FENOFIBRATE

REACTIONS (1)
  - Myocardial infarction [Unknown]
